FAERS Safety Report 8315155-6 (Version None)
Quarter: 2012Q2

REPORT INFORMATION
  Report Type: 
  Country: None (occurrence: None)
  Receive Date: 20120426
  Receipt Date: 20120419
  Transmission Date: 20120825
  Serious: Yes (Death)
  Sender: FDA-Public Use
  Company Number: CA-GLAXOSMITHKLINE-A0974432A

PATIENT
  Sex: Female

DRUGS (5)
  1. FENTANYL [Concomitant]
  2. PANTOPRAZOLE SODIUM [Concomitant]
  3. TYKERB [Suspect]
     Indication: BREAST CANCER METASTATIC
     Dosage: 1250MG PER DAY
     Route: 048
     Dates: start: 20111107
  4. DILAUDID [Concomitant]
  5. XELODA [Concomitant]

REACTIONS (1)
  - DEATH [None]
